FAERS Safety Report 19085037 (Version 3)
Quarter: 2021Q2

REPORT INFORMATION
  Report Type: Spontaneous
  Country: US (occurrence: US)
  Receive Date: 20210401
  Receipt Date: 20210430
  Transmission Date: 20210717
  Serious: Yes (Other)
  Sender: FDA-Public Use
  Company Number: NVSC2021US073158

PATIENT
  Sex: Female

DRUGS (2)
  1. PIQRAY [Suspect]
     Active Substance: ALPELISIB
     Indication: PRODUCT USED FOR UNKNOWN INDICATION
     Dosage: 300 MG, QD
     Route: 065
     Dates: start: 20210114, end: 20210122
  2. FULVESTRANT. [Suspect]
     Active Substance: FULVESTRANT
     Indication: PRODUCT USED FOR UNKNOWN INDICATION
     Dosage: UNK
     Route: 065
     Dates: start: 20210114

REACTIONS (10)
  - Rash erythematous [Unknown]
  - Blood glucose increased [Unknown]
  - Rash [Not Recovered/Not Resolved]
  - Drug intolerance [Unknown]
  - Chest pain [Unknown]
  - Diarrhoea [Unknown]
  - Oropharyngeal pain [Unknown]
  - Atrial fibrillation [Unknown]
  - Blister [Unknown]
  - Pyrexia [Unknown]
